FAERS Safety Report 9134014 (Version 2)
Quarter: 2013Q2

REPORT INFORMATION
  Report Type: Spontaneous
  Country: US (occurrence: US)
  Receive Date: 20130304
  Receipt Date: 20130403
  Transmission Date: 20140414
  Serious: Yes (Other)
  Sender: FDA-Public Use
  Company Number: US-AMGEN-USASP2013014164

PATIENT
  Age: 65 Year
  Sex: Female

DRUGS (5)
  1. SIMPONI [Concomitant]
     Dosage: UNK
  2. REMICADE [Concomitant]
     Dosage: UNK
  3. HUMIRA [Concomitant]
     Dosage: UNK
  4. ENBREL [Suspect]
     Indication: PSORIATIC ARTHROPATHY
     Dosage: 50 MG, QWK
     Dates: start: 200807
  5. ENBREL [Suspect]
     Indication: PSORIASIS

REACTIONS (9)
  - Limb injury [Not Recovered/Not Resolved]
  - Muscle rupture [Not Recovered/Not Resolved]
  - Ligament rupture [Not Recovered/Not Resolved]
  - Tendon rupture [Not Recovered/Not Resolved]
  - Concussion [Not Recovered/Not Resolved]
  - Arthralgia [Recovered/Resolved]
  - Urticaria [Recovered/Resolved]
  - Psoriasis [Recovered/Resolved]
  - Injection site pain [Not Recovered/Not Resolved]
